FAERS Safety Report 7985090-1 (Version None)
Quarter: 2011Q4

REPORT INFORMATION
  Report Type: 
  Country: None (occurrence: None)
  Receive Date: 20111216
  Receipt Date: 20111209
  Transmission Date: 20120403
  Serious: No
  Sender: FDA-Public Use
  Company Number: IT-NOVOPROD-336842

PATIENT

DRUGS (3)
  1. VICTOZA [Suspect]
     Indication: TYPE 2 DIABETES MELLITUS
     Dosage: 0.6 MG, QD
     Route: 065
  2. VICTOZA [Suspect]
     Dosage: 1.2 MG, QD
     Route: 065
  3. VICTOZA [Suspect]
     Dosage: 0.6 MG, QD
     Route: 065

REACTIONS (1)
  - PANCREATITIS [None]
